FAERS Safety Report 9220357 (Version 1)
Quarter: 2013Q1

REPORT INFORMATION
  Report Type: Spontaneous
  Country: US (occurrence: None)
  Receive Date: 20120830
  Receipt Date: 20120830
  Transmission Date: 20140127
  Serious: Yes (Other)
  Sender: FDA-Public Use
  Company Number: PHEH2011US06010

PATIENT
  Age: 66 Year
  Sex: Female
  Weight: 105 kg

DRUGS (4)
  1. SANDOSTATIN [Suspect]
     Indication: ACROMEGALY
     Route: 050
     Dates: start: 20110802, end: 20111006
  2. HYDROCHLOROTHIAZIDE (HYDROCHLOROTHIAZIDE) [Concomitant]
  3. METFORMIN (METFORMIN) [Concomitant]
  4. SPIRONOLACTON (SPIRONOLACTONE) [Concomitant]

REACTIONS (4)
  - Cholelithiasis [None]
  - Gallbladder disorder [None]
  - Nausea [None]
  - Abdominal pain upper [None]
